FAERS Safety Report 4540198-8 (Version None)
Quarter: 2004Q4

REPORT INFORMATION
  Report Type: 
  Country: None (occurrence: None)
  Receive Date: 20041222
  Receipt Date: 20041201
  Transmission Date: 20050328
  Serious: Yes (Death)
  Sender: FDA-Public Use
  Company Number: EWC041241659

PATIENT
  Age: 54 Year
  Sex: Female

DRUGS (1)
  1. XIGRIS [Suspect]
     Indication: SEPSIS
     Dosage: 24 UG/KG/HR
     Dates: start: 20041101, end: 20041101

REACTIONS (3)
  - CEREBRAL HAEMORRHAGE [None]
  - METASTASES TO CENTRAL NERVOUS SYSTEM [None]
  - MYDRIASIS [None]
